FAERS Safety Report 7235781-5 (Version None)
Quarter: 2011Q1

REPORT INFORMATION
  Report Type: 
  Country: None (occurrence: None)
  Receive Date: 20110110
  Receipt Date: 20101222
  Transmission Date: 20110831
  Serious: Yes (Death, Life-Threatening, Hospitalization, Other)
  Sender: FDA-Public Use
  Company Number: 2009AC000068

PATIENT
  Age: 50 Year
  Sex: Male
  Weight: 160.5733 kg

DRUGS (40)
  1. CORDARONE [Concomitant]
  2. ALLOPURINOL [Concomitant]
  3. ZAROXOLYN [Concomitant]
  4. ZOCOR [Concomitant]
  5. INSPRA [Concomitant]
  6. ASPIRIN [Concomitant]
  7. ZAROXOLYN [Concomitant]
  8. NITREX [Concomitant]
  9. IMDUR [Concomitant]
  10. ALDACTONE [Concomitant]
  11. LASIX [Concomitant]
  12. PAXIL [Concomitant]
  13. PREVACID [Concomitant]
  14. AMIODARONE [Concomitant]
  15. K-DUR [Concomitant]
  16. DIGOXIN [Suspect]
     Dosage: 0.25 MG; 4 DOSES; IV
     Route: 042
     Dates: start: 20030529, end: 20030501
  17. FERO-GRAD [Concomitant]
  18. MAGOXIDE [Concomitant]
  19. FOLIC ACID [Concomitant]
  20. METFORMIN [Concomitant]
  21. FLUOXETINE [Concomitant]
  22. DIGOXIN [Suspect]
     Dosage: 0.125 MG; QD; PO
     Route: 048
     Dates: start: 20030501, end: 20080201
  23. ASPIRIN [Concomitant]
  24. INSULIN [Concomitant]
  25. DIOVAN [Concomitant]
  26. THERAGRAM [Concomitant]
  27. ACYCLOVIR [Concomitant]
  28. PLAVIX [Concomitant]
  29. POTASSIUM CHLORIDE [Concomitant]
  30. NOVOLIN 70/30 [Concomitant]
  31. FUROSEMIDE [Concomitant]
  32. AMARYL [Concomitant]
  33. FOLTX [Concomitant]
  34. NOVOLOG [Concomitant]
  35. NITROGLYCERIN [Concomitant]
  36. MULTI-VITAMIN [Concomitant]
  37. COLCHICINE [Concomitant]
  38. NITROGLYCERIN [Concomitant]
  39. COREG [Concomitant]
  40. LEVAQUIN [Concomitant]

REACTIONS (58)
  - DIZZINESS [None]
  - DIARRHOEA [None]
  - HYPOTENSION [None]
  - PULSELESS ELECTRICAL ACTIVITY [None]
  - MULTI-ORGAN FAILURE [None]
  - CARDIO-RESPIRATORY ARREST [None]
  - VENTRICULAR TACHYCARDIA [None]
  - RENAL FAILURE ACUTE [None]
  - CARDIOACTIVE DRUG LEVEL INCREASED [None]
  - BLOOD PRESSURE INADEQUATELY CONTROLLED [None]
  - LIVER FUNCTION TEST ABNORMAL [None]
  - LEFT ATRIAL DILATATION [None]
  - DECREASED APPETITE [None]
  - TRICUSPID VALVE INCOMPETENCE [None]
  - PAIN [None]
  - POLLAKIURIA [None]
  - UNRESPONSIVE TO STIMULI [None]
  - HYPOXIC-ISCHAEMIC ENCEPHALOPATHY [None]
  - ATRIOVENTRICULAR BLOCK FIRST DEGREE [None]
  - MITRAL VALVE INCOMPETENCE [None]
  - BACK PAIN [None]
  - PRODUCTIVE COUGH [None]
  - VENTRICULAR HYPOKINESIA [None]
  - AORTIC VALVE INCOMPETENCE [None]
  - AORTIC CALCIFICATION [None]
  - BRAIN DEATH [None]
  - PRODUCT QUALITY ISSUE [None]
  - DYSPNOEA [None]
  - DEPRESSION [None]
  - ANXIETY [None]
  - SLEEP APNOEA SYNDROME [None]
  - VENTRICULAR FIBRILLATION [None]
  - SEPSIS [None]
  - CARDIAC FAILURE CONGESTIVE [None]
  - AORTIC VALVE SCLEROSIS [None]
  - MITRAL VALVE CALCIFICATION [None]
  - ACQUIRED DIAPHRAGMATIC EVENTRATION [None]
  - AREFLEXIA [None]
  - CARDIOACTIVE DRUG LEVEL BELOW THERAPEUTIC [None]
  - DIABETES MELLITUS INADEQUATE CONTROL [None]
  - ASTHENIA [None]
  - RESPIRATORY FAILURE [None]
  - DILATATION VENTRICULAR [None]
  - HERPES ZOSTER [None]
  - HYPOKALAEMIA [None]
  - WEIGHT INCREASED [None]
  - URINARY TRACT INFECTION [None]
  - ANAEMIA [None]
  - CHILLS [None]
  - ECONOMIC PROBLEM [None]
  - MULTIPLE INJURIES [None]
  - DEHYDRATION [None]
  - LEFT VENTRICULAR DYSFUNCTION [None]
  - NAUSEA [None]
  - HEADACHE [None]
  - HYPOXIA [None]
  - MALAISE [None]
  - ELECTROENCEPHALOGRAM ABNORMAL [None]
